FAERS Safety Report 6463843-9 (Version None)
Quarter: 2009Q4

REPORT INFORMATION
  Report Type: 
  Country: None (occurrence: None)
  Receive Date: 20091201
  Receipt Date: 20091119
  Transmission Date: 20100525
  Serious: Yes (Hospitalization, Other)
  Sender: FDA-Public Use
  Company Number: US-JNJFOC-20091106405

PATIENT
  Sex: Male
  Weight: 92.08 kg

DRUGS (1)
  1. NUCYNTA [Suspect]
     Indication: PAIN
     Dosage: 1 EVERY 4-6 HOURS AS NEEDED
     Route: 065

REACTIONS (4)
  - CARDIAC ARREST [None]
  - DRUG INEFFECTIVE [None]
  - PRODUCT QUALITY ISSUE [None]
  - VISION BLURRED [None]
